FAERS Safety Report 4910011-5 (Version None)
Quarter: 2006Q1

REPORT INFORMATION
  Report Type: 
  Country: None (occurrence: None)
  Receive Date: 20060208
  Receipt Date: 20060126
  Transmission Date: 20060701
  Serious: Yes (Death)
  Sender: FDA-Public Use
  Company Number: 2006BH001445

PATIENT

DRUGS (3)
  1. LIDOCAINE HCL W/ DEXTROSE [Suspect]
     Indication: CONVULSION NEONATAL
     Dosage: 2 MG/KG IV ; 6 MG/KG IV
     Route: 042
  2. PHENOBARBITAL TAB [Concomitant]
  3. CLONAZEPAM [Concomitant]

REACTIONS (3)
  - BRADYCARDIA [None]
  - ELECTROENCEPHALOGRAM ABNORMAL [None]
  - INFUSION RELATED REACTION [None]
